FAERS Safety Report 13705955 (Version 2)
Quarter: 2018Q1

REPORT INFORMATION
  Report Type: Report from Study
  Country: JP (occurrence: JP)
  Receive Date: 20170630
  Receipt Date: 20180226
  Transmission Date: 20180508
  Serious: Yes (Hospitalization)
  Sender: FDA-Public Use
  Company Number: JP-BRISTOL-MYERS SQUIBB COMPANY-BMS-2017-041720

PATIENT
  Age: 76 Year
  Sex: Male

DRUGS (2)
  1. NIVOLUMAB [Suspect]
     Active Substance: NIVOLUMAB
     Indication: HEAD AND NECK CANCER
     Dosage: 3 MG/KG, UNK
     Route: 041
     Dates: start: 20170427, end: 20170608
  2. INSULIN [Concomitant]
     Active Substance: INSULIN NOS
     Indication: PRODUCT USED FOR UNKNOWN INDICATION
     Route: 065

REACTIONS (6)
  - Myositis [Recovered/Resolved]
  - Arthralgia [Recovering/Resolving]
  - Blood creatinine increased [Unknown]
  - Blood glucose increased [Unknown]
  - Blood potassium increased [Unknown]
  - Hypothyroidism [Recovered/Resolved]

NARRATIVE: CASE EVENT DATE: 2017
